FAERS Safety Report 21382372 (Version 2)
Quarter: 2022Q4

REPORT INFORMATION
  Report Type: Other
  Country: QA (occurrence: None)
  Receive Date: 20220927
  Receipt Date: 20221007
  Transmission Date: 20230112
  Serious: Yes (Hospitalization)
  Sender: FDA-Public Use
  Company Number: QA-ROCHE-3046666

PATIENT
  Age: 62 Year
  Sex: Male

DRUGS (32)
  1. OCRELIZUMAB [Suspect]
     Active Substance: OCRELIZUMAB
     Indication: Primary progressive multiple sclerosis
     Dosage: DOSE LAST STUDY DRUG ADMIN PRIOR AE/SAE:600MG. START DATE OF MOST RECENT DOSE OF STUDY DRUG PRIOR TO
     Route: 042
     Dates: start: 20201216
  2. OCRELIZUMAB [Suspect]
     Active Substance: OCRELIZUMAB
     Dosage: SUBSEQUENT DOSES ON:14-JUN-2021
     Route: 042
     Dates: start: 20220222, end: 20220222
  3. OCRELIZUMAB [Suspect]
     Active Substance: OCRELIZUMAB
     Route: 042
     Dates: start: 20221002, end: 20221002
  4. ACETAMINOPHEN [Concomitant]
     Active Substance: ACETAMINOPHEN
     Indication: Prophylaxis
     Dosage: BEFORE INFUSION
     Route: 042
     Dates: start: 20220222, end: 20220222
  5. ACETAMINOPHEN [Concomitant]
     Active Substance: ACETAMINOPHEN
     Route: 042
     Dates: start: 20221002, end: 20221002
  6. METHYLPREDNISOLONE [Concomitant]
     Active Substance: METHYLPREDNISOLONE
     Indication: Prophylaxis
     Dosage: BEFORE INFUSION
     Route: 042
     Dates: start: 20220222, end: 20220222
  7. METHYLPREDNISOLONE [Concomitant]
     Active Substance: METHYLPREDNISOLONE
     Route: 042
     Dates: start: 20221002, end: 20221002
  8. DIPHENHYDRAMINE [Concomitant]
     Active Substance: DIPHENHYDRAMINE
     Indication: Prophylaxis
     Dosage: BEFORE INFUSION
     Route: 042
     Dates: start: 20220222, end: 20220222
  9. DIPHENHYDRAMINE [Concomitant]
     Active Substance: DIPHENHYDRAMINE
     Route: 042
     Dates: start: 20221002, end: 20221002
  10. FUROSEMIDE [Concomitant]
     Active Substance: FUROSEMIDE
     Indication: Anaemia
     Route: 048
     Dates: start: 20211209, end: 20211216
  11. SACUBITRIL\VALSARTAN [Concomitant]
     Active Substance: SACUBITRIL\VALSARTAN
     Route: 048
     Dates: start: 20211210
  12. LACTATED RINGERS SOLUTION [Concomitant]
     Active Substance: CALCIUM CHLORIDE\POTASSIUM CHLORIDE\SODIUM CHLORIDE\SODIUM LACTATE
     Route: 042
     Dates: start: 20211201, end: 20211201
  13. PLASMA PROTEIN FRACTION [Concomitant]
     Active Substance: PLASMA PROTEIN FRACTION (HUMAN)
     Route: 042
     Dates: start: 20211201, end: 20211201
  14. PIPERACILLIN AND TAZOBACTAM [Concomitant]
     Active Substance: PIPERACILLIN SODIUM\TAZOBACTAM SODIUM
     Route: 042
     Dates: start: 20211201, end: 20211204
  15. PIPERACILLIN AND TAZOBACTAM [Concomitant]
     Active Substance: PIPERACILLIN SODIUM\TAZOBACTAM SODIUM
     Route: 042
     Dates: start: 20211221
  16. MAGNESIUM SULFATE [Concomitant]
     Active Substance: MAGNESIUM SULFATE
     Route: 042
     Dates: start: 20211201, end: 20211208
  17. CARBAMAZEPINE [Concomitant]
     Active Substance: CARBAMAZEPINE
     Route: 048
     Dates: start: 20211210
  18. DABIGATRAN [Concomitant]
     Active Substance: DABIGATRAN
     Route: 048
     Dates: start: 20211210
  19. ASPIRIN [Concomitant]
     Active Substance: ASPIRIN
     Route: 048
     Dates: start: 20211210
  20. BACLOFEN [Concomitant]
     Active Substance: BACLOFEN
     Indication: Multiple sclerosis
     Route: 048
     Dates: start: 20211210
  21. SPIRONOLACTONE [Concomitant]
     Active Substance: SPIRONOLACTONE
     Route: 048
     Dates: start: 20211210
  22. AZITHROMYCIN [Concomitant]
     Active Substance: AZITHROMYCIN
     Route: 042
     Dates: start: 20211221, end: 20211224
  23. ALBUMINE HUMAN [Concomitant]
     Route: 042
     Dates: start: 20211222, end: 20211222
  24. BETA SITOSTEROL [Concomitant]
     Route: 061
     Dates: start: 20211201
  25. BISOPROLOL [Concomitant]
     Active Substance: BISOPROLOL
     Route: 048
     Dates: start: 20211202, end: 20211203
  26. CEFTRIAXONE [Concomitant]
     Active Substance: CEFTRIAXONE
     Route: 042
     Dates: start: 20211201, end: 20211201
  27. CLINDAMYCIN [Concomitant]
     Active Substance: CLINDAMYCIN
     Route: 042
     Dates: start: 20211201, end: 20211206
  28. CLOTRIMAZOLE [Concomitant]
     Active Substance: CLOTRIMAZOLE
     Route: 061
     Dates: start: 20211201, end: 20211208
  29. AMIODARONE;DEXTROSE [Concomitant]
     Dates: start: 20211222, end: 20211222
  30. AMIODARONE [Concomitant]
     Active Substance: AMIODARONE
     Dates: start: 20211222, end: 20211222
  31. AMOXICILLIN\CLAVULANIC ACID [Concomitant]
     Active Substance: AMOXICILLIN\CLAVULANIC ACID
  32. BISOPROLOL [Concomitant]
     Active Substance: BISOPROLOL

REACTIONS (2)
  - Ejection fraction decreased [Not Recovered/Not Resolved]
  - Cellulitis [Recovered/Resolved]

NARRATIVE: CASE EVENT DATE: 20210901
